FAERS Safety Report 8211292-5 (Version None)
Quarter: 2012Q1

REPORT INFORMATION
  Report Type: 
  Country: None (occurrence: None)
  Receive Date: 20120315
  Receipt Date: 20120312
  Transmission Date: 20120608
  Serious: No
  Sender: FDA-Public Use
  Company Number: US-PFIZER INC-2012065073

PATIENT
  Sex: Female
  Weight: 56.689 kg

DRUGS (2)
  1. RED YEAST RICE [Concomitant]
     Dosage: UNK
  2. IBUPROFEN (ADVIL) [Suspect]
     Indication: BACK PAIN
     Dosage: 400 MG, DAILY
     Route: 048
     Dates: start: 20120311, end: 20120312

REACTIONS (2)
  - DRUG INEFFECTIVE [None]
  - NAUSEA [None]
